FAERS Safety Report 9411862 (Version 2)
Quarter: 2013Q3

REPORT INFORMATION
  Report Type: Report from Study
  Country: IL (occurrence: IL)
  Receive Date: 20130722
  Receipt Date: 20130725
  Transmission Date: 20140515
  Serious: No
  Sender: FDA-Public Use
  Company Number: PHHY2013IL075637

PATIENT
  Sex: Female

DRUGS (2)
  1. SANDOSTATIN LAR [Suspect]
     Indication: CARCINOID TUMOUR
     Dosage: 20 MG, 1Q4W
     Dates: start: 20130401
  2. SANDOSTATIN LAR [Suspect]
     Dosage: 30 MG, 1Q4W
     Dates: start: 20130714

REACTIONS (1)
  - Local swelling [Recovered/Resolved]
